FAERS Safety Report 9272848 (Version 1)
Quarter: 2013Q2

REPORT INFORMATION
  Report Type: Spontaneous
  Country: US (occurrence: US)
  Receive Date: 20130506
  Receipt Date: 20130506
  Transmission Date: 20140414
  Serious: No
  Sender: FDA-Public Use
  Company Number: US-ASTRAZENECA-2013SE28087

PATIENT
  Age: 72 Year
  Sex: Female
  Weight: 13.2 kg

DRUGS (6)
  1. CRESTOR [Suspect]
     Indication: HIGH DENSITY LIPOPROTEIN DECREASED
     Route: 048
     Dates: start: 20130401
  2. HCTZ [Concomitant]
     Indication: BLOOD PRESSURE
     Dates: start: 2003
  3. FISH OIL [Concomitant]
  4. BABY ASPIRIN [Concomitant]
  5. VITAMIN [Concomitant]
  6. COSAMINE [Concomitant]
     Indication: ARTHROPATHY

REACTIONS (1)
  - Nocturia [Unknown]
